FAERS Safety Report 19714221 (Version 2)
Quarter: 2021Q3

REPORT INFORMATION
  Report Type: Spontaneous
  Country: US (occurrence: US)
  Receive Date: 20210818
  Receipt Date: 20210823
  Transmission Date: 20211014
  Serious: No
  Sender: FDA-Public Use
  Company Number: US-TEVA-2021-US-1941465

PATIENT
  Sex: Male

DRUGS (2)
  1. FLUDROCORTISONE ACETATE TEVA [Suspect]
     Active Substance: FLUDROCORTISONE ACETATE
     Indication: ORTHOSTATIC HYPOTENSION
     Route: 065
     Dates: start: 20210713
  2. ATENOLOL. [Suspect]
     Active Substance: ATENOLOL
     Route: 065

REACTIONS (3)
  - Dizziness [Not Recovered/Not Resolved]
  - Drug ineffective [Unknown]
  - Product use in unapproved indication [Unknown]

NARRATIVE: CASE EVENT DATE: 202107
